FAERS Safety Report 5400897-2 (Version None)
Quarter: 2007Q3

REPORT INFORMATION
  Report Type: 
  Country: None (occurrence: None)
  Receive Date: 20070725
  Receipt Date: 20070710
  Transmission Date: 20080115
  Serious: Yes (Hospitalization)
  Sender: FDA-Public Use
  Company Number: SPV1-2007-03579

PATIENT
  Age: 14 Year
  Sex: Male
  Weight: 48.1 kg

DRUGS (7)
  1. ADDERALL XR 10 [Suspect]
     Indication: ATTENTION DEFICIT/HYPERACTIVITY DISORDER
     Dosage: 10 MG, 1X/DAY:QD, ORAL; 15 MG, 1X/DAY:QD, ORAL; 20 MG;1X/DAY:QD, ORAL
     Route: 048
     Dates: start: 20061201, end: 20070101
  2. ADDERALL XR 10 [Suspect]
     Indication: ATTENTION DEFICIT/HYPERACTIVITY DISORDER
     Dosage: 10 MG, 1X/DAY:QD, ORAL; 15 MG, 1X/DAY:QD, ORAL; 20 MG;1X/DAY:QD, ORAL
     Route: 048
     Dates: start: 20070101, end: 20070101
  3. ADDERALL XR 10 [Suspect]
     Indication: ATTENTION DEFICIT/HYPERACTIVITY DISORDER
     Dosage: 10 MG, 1X/DAY:QD, ORAL; 15 MG, 1X/DAY:QD, ORAL; 20 MG;1X/DAY:QD, ORAL
     Route: 048
     Dates: start: 20070201, end: 20070302
  4. ADDERALL XR 10 [Suspect]
     Indication: ATTENTION DEFICIT/HYPERACTIVITY DISORDER
     Dosage: 10 MG, 1X/DAY:QD, ORAL; 15 MG, 1X/DAY:QD, ORAL; 20 MG;1X/DAY:QD, ORAL
     Route: 048
     Dates: start: 20070330, end: 20070429
  5. ADDERALL XR 10 [Suspect]
     Indication: ATTENTION DEFICIT/HYPERACTIVITY DISORDER
     Dosage: 10 MG, 1X/DAY:QD, ORAL; 15 MG, 1X/DAY:QD, ORAL; 20 MG;1X/DAY:QD, ORAL
     Route: 048
     Dates: start: 20070430, end: 20070517
  6. MACRODANTIN [Concomitant]
  7. DITROPAN [Concomitant]

REACTIONS (3)
  - COLLAPSE OF LUNG [None]
  - INTESTINAL OBSTRUCTION [None]
  - RESPIRATORY TRACT INFECTION [None]
